FAERS Safety Report 18333721 (Version 1)
Quarter: 2020Q4

REPORT INFORMATION
  Report Type: Spontaneous
  Country: FR (occurrence: FR)
  Receive Date: 20201001
  Receipt Date: 20201001
  Transmission Date: 20210113
  Serious: Yes (Other)
  Sender: FDA-Public Use
  Company Number: FR-BIOVITRUM-2020FR5119

PATIENT
  Age: 40 Year
  Sex: Male
  Weight: 94 kg

DRUGS (8)
  1. ACIDE FOLIQUE [Concomitant]
     Active Substance: FOLIC ACID
  2. KINERET [Suspect]
     Active Substance: ANAKINRA
     Indication: DIFFUSE VASCULITIS
     Route: 058
     Dates: start: 20190709
  3. ACTONEL [Concomitant]
     Active Substance: RISEDRONATE SODIUM
  4. STILNOX [Concomitant]
     Active Substance: ZOLPIDEM TARTRATE
  5. BACTRIM [Concomitant]
     Active Substance: SULFAMETHOXAZOLE\TRIMETHOPRIM
  6. DELURSAN [Concomitant]
     Active Substance: URSODIOL
  7. PLAQUENIL [Concomitant]
     Active Substance: HYDROXYCHLOROQUINE SULFATE
  8. VALACICLOVIR (CHLORHYDRATE DE) [Concomitant]
     Active Substance: VALACYCLOVIR HYDROCHLORIDE

REACTIONS (2)
  - Hypertriglyceridaemia [Not Recovered/Not Resolved]
  - Off label use [Unknown]

NARRATIVE: CASE EVENT DATE: 20190709
